FAERS Safety Report 25993529 (Version 1)
Quarter: 2025Q4

REPORT INFORMATION
  Report Type: Report from Study
  Country: CA (occurrence: CA)
  Receive Date: 20251104
  Receipt Date: 20251104
  Transmission Date: 20260117
  Serious: Yes (Disabling)
  Sender: ABBVIE
  Company Number: CA-ABBVIE-6526806

PATIENT
  Sex: Male

DRUGS (1)
  1. RINVOQ [Suspect]
     Active Substance: UPADACITINIB
     Indication: Ankylosing spondylitis
     Dosage: FORM STRENGTH 15MG
     Route: 048

REACTIONS (2)
  - Disability [Unknown]
  - Arthritis [Unknown]

NARRATIVE: CASE EVENT DATE: 20250101
